FAERS Safety Report 20758720 (Version 2)
Quarter: 2022Q2

REPORT INFORMATION
  Report Type: Spontaneous
  Country: US (occurrence: None)
  Receive Date: 20220427
  Receipt Date: 20220505
  Transmission Date: 20220720
  Serious: Yes (Other)
  Sender: FDA-Public Use
  Company Number: 2022A159760

PATIENT
  Age: 21712 Day

DRUGS (1)
  1. SYMBICORT [Suspect]
     Active Substance: BUDESONIDE\FORMOTEROL FUMARATE DIHYDRATE
     Dosage: 160/4.5MCG, 2 PUFFS TWICE A DAY.
     Route: 055

REACTIONS (7)
  - Neoplasm malignant [Unknown]
  - General physical health deterioration [Unknown]
  - Auditory disorder [Unknown]
  - Chest pain [Unknown]
  - Arthritis [Unknown]
  - Intentional device misuse [Unknown]
  - Device use issue [Unknown]

NARRATIVE: CASE EVENT DATE: 20201221
